FAERS Safety Report 11575931 (Version 1)
Quarter: 2015Q3

REPORT INFORMATION
  Report Type: Spontaneous
  Country: FR (occurrence: FR)
  Receive Date: 20150930
  Receipt Date: 20150930
  Transmission Date: 20151125
  Serious: Yes (Hospitalization)
  Sender: FDA-Public Use
  Company Number: FR-SA-2015SA146727

PATIENT
  Age: 86 Year
  Sex: Female

DRUGS (4)
  1. AMAREL [Suspect]
     Active Substance: GLIMEPIRIDE
     Route: 048
     Dates: end: 20150831
  2. DIOVAN [Concomitant]
     Active Substance: VALSARTAN
     Dates: end: 20150831
  3. AMLOR [Suspect]
     Active Substance: AMLODIPINE BESYLATE
     Route: 048
     Dates: end: 20150831
  4. TAREG [Suspect]
     Active Substance: VALSARTAN
     Route: 048
     Dates: end: 20150831

REACTIONS (2)
  - Fall [Recovered/Resolved]
  - Hypoglycaemia [Recovered/Resolved]

NARRATIVE: CASE EVENT DATE: 20150831
